FAERS Safety Report 13095867 (Version 1)
Quarter: 2017Q1

REPORT INFORMATION
  Report Type: Spontaneous
  Country: GB (occurrence: GB)
  Receive Date: 20170109
  Receipt Date: 20170109
  Transmission Date: 20170428
  Serious: Yes (Life-Threatening, Hospitalization, Other)
  Sender: FDA-Public Use
  Company Number: GB-ORION CORPORATION ORION PHARMA-TREX2017-0021

PATIENT
  Age: 61 Year
  Sex: Male

DRUGS (2)
  1. METHOTREXATE. [Suspect]
     Active Substance: METHOTREXATE
     Indication: BLADDER TRANSITIONAL CELL CARCINOMA
     Route: 048
  2. NAPROXEN. [Suspect]
     Active Substance: NAPROXEN
     Route: 065

REACTIONS (11)
  - Bone marrow failure [Unknown]
  - Oropharyngeal pain [Unknown]
  - Abdominal pain upper [Unknown]
  - Cytopenia [Unknown]
  - Asthenia [Unknown]
  - Neutrophil count decreased [Recovered/Resolved]
  - Haematemesis [Unknown]
  - Pyrexia [Unknown]
  - Dyspnoea exertional [Unknown]
  - Haematuria [Unknown]
  - Drug interaction [Unknown]
